FAERS Safety Report 10100665 (Version 1)
Quarter: 2014Q2

REPORT INFORMATION
  Report Type: Report from Study
  Country: US (occurrence: US)
  Receive Date: 20140423
  Receipt Date: 20140423
  Transmission Date: 20141212
  Serious: Yes (Hospitalization)
  Sender: FDA-Public Use
  Company Number: US-ACTELION-A-US2014-97594

PATIENT
  Age: 57 Year
  Sex: Female

DRUGS (3)
  1. TRACLEER [Suspect]
     Indication: COR PULMONALE CHRONIC
     Dosage: UNK
     Route: 048
  2. RIOCIGUAT [Concomitant]
  3. COUMADIN [Concomitant]

REACTIONS (1)
  - Infection [Unknown]
